FAERS Safety Report 18274855 (Version 1)
Quarter: 2020Q3

REPORT INFORMATION
  Report Type: Report from Study
  Country: GB (occurrence: GB)
  Receive Date: 20200916
  Receipt Date: 20200916
  Transmission Date: 20201103
  Serious: Yes (Hospitalization, Other)
  Sender: FDA-Public Use
  Company Number: GB-JNJFOC-20190740414

PATIENT
  Age: 58 Year
  Sex: Male

DRUGS (2)
  1. STELARA [Suspect]
     Active Substance: USTEKINUMAB
     Route: 058
     Dates: start: 20150604
  2. STELARA [Suspect]
     Active Substance: USTEKINUMAB
     Indication: PSORIASIS
     Dosage: 90MG WEEK 0 LOADING DOSE?90MG WEEK 4 LOADING DOSE?90MG EVERY 12 WEEKS MAINTENANCE DOSE
     Route: 058
     Dates: start: 20150604

REACTIONS (5)
  - Type 2 diabetes mellitus [Unknown]
  - Gangrene [Unknown]
  - Inappropriate schedule of product administration [Unknown]
  - Self-medication [Unknown]
  - Adverse event [Unknown]

NARRATIVE: CASE EVENT DATE: 20190725
